FAERS Safety Report 9346339 (Version 3)
Quarter: 2013Q3

REPORT INFORMATION
  Report Type: Spontaneous
  Country: NL (occurrence: NL)
  Receive Date: 20130613
  Receipt Date: 20130710
  Transmission Date: 20140515
  Serious: Yes (Hospitalization, Other)
  Sender: FDA-Public Use
  Company Number: NL-ELI_LILLY_AND_COMPANY-NL201306001479

PATIENT
  Age: 25 Year
  Sex: Male

DRUGS (6)
  1. ZYPADHERA [Suspect]
     Dosage: 300 MG, 2/M
     Dates: start: 20130326
  2. ZYPADHERA [Suspect]
     Dosage: 300 MG, 2/M
     Dates: start: 20130410
  3. ZYPADHERA [Suspect]
     Dosage: 300 MG, 2/M
     Dates: start: 20130423
  4. ZYPADHERA [Suspect]
     Dosage: 300 MG, 2/M
     Dates: start: 20130507
  5. ZYPADHERA [Suspect]
     Dosage: 300 MG, 2/M
     Dates: start: 20130521
  6. ZYPADHERA [Suspect]
     Dosage: 300 MG, 2/M
     Dates: start: 20130604

REACTIONS (14)
  - Confusional state [Recovered/Resolved]
  - Tongue paralysis [Recovered/Resolved]
  - Abnormal behaviour [Recovered/Resolved]
  - Memory impairment [Recovered/Resolved]
  - Tachycardia [Recovered/Resolved]
  - Dysarthria [Recovered/Resolved]
  - Fatigue [Not Recovered/Not Resolved]
  - Dizziness [Recovered/Resolved]
  - Disturbance in attention [Recovered/Resolved]
  - Gait disturbance [Recovered/Resolved]
  - Somnolence [Recovered/Resolved]
  - Nausea [Recovered/Resolved]
  - Dry mouth [Recovered/Resolved]
  - Decreased appetite [Unknown]
